FAERS Safety Report 5123805-0 (Version None)
Quarter: 2006Q3

REPORT INFORMATION
  Report Type: 
  Country: None (occurrence: None)
  Receive Date: 20060802
  Receipt Date: 20050720
  Transmission Date: 20061208
  Serious: Yes (Hospitalization)
  Sender: FDA-Public Use
  Company Number: 2005-07-1742

PATIENT
  Age: 24 Year
  Sex: Female
  Weight: 59.4212 kg

DRUGS (2)
  1. INTRON A [Suspect]
     Indication: HEPATITIS C
     Dosage: UNKNOWN
     Dates: start: 19990101
  2. REBETOL [Suspect]
     Indication: HEPATITIS C
     Dosage: UNKNOWN ORAL
     Route: 048
     Dates: start: 19990101, end: 19991201

REACTIONS (1)
  - MENTAL DISORDER [None]
